FAERS Safety Report 16800198 (Version 1)
Quarter: 2019Q4

REPORT INFORMATION
  Report Type: Spontaneous
  Country: US (occurrence: US)
  Receive Date: 20190912
  Receipt Date: 20190912
  Transmission Date: 20200122
  Serious: Yes (Hospitalization)
  Sender: FDA-Public Use
  Company Number: None

PATIENT
  Age: 63 Year
  Sex: Female

DRUGS (9)
  1. MOMETASONE SPR 50 MCG [Concomitant]
  2. DIAZEPAM TAB 2 MG [Concomitant]
  3. ASPIRIN LOW TAB 81 MG EC [Concomitant]
  4. SPRYCEL [Suspect]
     Active Substance: DASATINIB
     Indication: PRODUCT USED FOR UNKNOWN INDICATION
     Route: 048
     Dates: start: 20190327
  5. TEMAZEPAM CAP 15 MG [Concomitant]
  6. CARVEDILOL TAB 6.25 MG [Concomitant]
  7. CRESTOR TAB 15 MG [Concomitant]
  8. VALTREX TAB 1 GM [Concomitant]
  9. XYZAL TAB 5 MG [Concomitant]

REACTIONS (3)
  - Pyrexia [None]
  - Peripheral swelling [None]
  - Pulmonary oedema [None]
